FAERS Safety Report 16230312 (Version 4)
Quarter: 2019Q2

REPORT INFORMATION
  Report Type: Spontaneous
  Country: ES (occurrence: ES)
  Receive Date: 20190423
  Receipt Date: 20190509
  Transmission Date: 20190711
  Serious: Yes (Other)
  Sender: FDA-Public Use
  Company Number: ES-PFIZER INC-2019165825

PATIENT
  Age: 61 Year
  Sex: Male

DRUGS (5)
  1. PARACETAMOL [Suspect]
     Active Substance: ACETAMINOPHEN
     Dosage: 1 G, UNK
     Route: 065
  2. PIROXICAM. [Suspect]
     Active Substance: PIROXICAM
     Dosage: UNK
     Route: 048
  3. IBUPROFEN. [Suspect]
     Active Substance: IBUPROFEN
     Dosage: 600 MG, UNK
     Route: 048
  4. DICLOFENAC [Suspect]
     Active Substance: DICLOFENAC
     Dosage: UNK
     Route: 061
  5. INDOMETACIN [Suspect]
     Active Substance: INDOMETHACIN
     Dosage: 50 MG, UNK
     Route: 048

REACTIONS (4)
  - Mast cell activation syndrome [Recovered/Resolved]
  - Angioedema [Recovered/Resolved]
  - Urticaria [Unknown]
  - Anaphylactic reaction [Recovered/Resolved]

NARRATIVE: CASE EVENT DATE: 1987
